FAERS Safety Report 8388300-4 (Version None)
Quarter: 2012Q2

REPORT INFORMATION
  Report Type: 
  Country: None (occurrence: None)
  Receive Date: 20120525
  Receipt Date: 20120515
  Transmission Date: 20120825
  Serious: Yes (Hospitalization, Other)
  Sender: FDA-Public Use
  Company Number: US-MYLANLABS-2009AL001943

PATIENT
  Sex: Male
  Weight: 108.86 kg

DRUGS (67)
  1. DIGOXIN [Suspect]
     Indication: PRODUCT USED FOR UNKNOWN INDICATION
     Route: 048
     Dates: start: 20010413, end: 20090720
  2. PRAVASTATIN [Concomitant]
  3. IMDUR [Concomitant]
  4. ZITHROMAX [Concomitant]
  5. CIPROFLOXACIN HCL [Concomitant]
  6. PRAVACHOL [Concomitant]
  7. CYCLOBENAZPRINE [Concomitant]
  8. PREDNISONE TAB [Concomitant]
  9. COREG [Concomitant]
  10. IPRATROPIUM BROMIDE [Concomitant]
  11. MOTRIN [Concomitant]
  12. ROCEPHIN [Concomitant]
  13. LISINOPRIL [Concomitant]
  14. ISOSORBIDE DINITRATE [Concomitant]
  15. CARDIZEM [Concomitant]
  16. ATROPINE SULFATE/DIPHENOXYLATE [Concomitant]
  17. HYDROCODONE BITARTRATE AND ACETAMINOPHEN [Concomitant]
  18. DOXAZOSIN MESYLATE [Concomitant]
  19. KETEK /00984601/ [Concomitant]
  20. ASPIRIN [Concomitant]
  21. PRILOSEC [Concomitant]
  22. ISOTRATE /07346401/ [Concomitant]
  23. PACERONE [Concomitant]
  24. LORATADINE [Concomitant]
  25. ANTIVERT [Concomitant]
  26. MUCINEX [Concomitant]
  27. NITROLINGUAL [Concomitant]
     Route: 060
  28. LUSONEX [Concomitant]
  29. FEXOFENADINE [Concomitant]
  30. LEVOTHROID [Concomitant]
  31. POTASSIUM CHLORIDE [Concomitant]
  32. VIOXX [Concomitant]
  33. ZYRTEC [Concomitant]
  34. ADVAIR DISKUS 100/50 [Concomitant]
  35. METOPROLOL [Concomitant]
  36. NEXIUM [Concomitant]
  37. AMBIEN [Concomitant]
  38. KLOR-CON [Concomitant]
  39. AMOXICILLIN [Concomitant]
  40. ZITHROMAX [Concomitant]
  41. LEVOTHROID [Concomitant]
  42. LOPRESSOR [Concomitant]
  43. ATROVENT [Concomitant]
  44. ASPIRIN [Concomitant]
  45. MARCOF EXPECTORANT [Concomitant]
  46. SULFAMETHOXAZOLE AND TRIMETHOPRIM [Concomitant]
     Dosage: FOR ONE WEEK
  47. TOPROL-XL [Concomitant]
  48. POTASSIUM CHLORIDE [Concomitant]
  49. FLEXERIL [Concomitant]
  50. MECLIZINE [Concomitant]
  51. FOLTX [Concomitant]
  52. NAPROXEN [Concomitant]
  53. TUSSIONEX /00004701/ [Concomitant]
  54. ALBUTEROL [Concomitant]
     Dosage: BID AND TID PRN
  55. WARFARIN SODIUM [Concomitant]
  56. DIOVAN [Concomitant]
  57. VEETIDS [Concomitant]
  58. LOVASTATIN [Concomitant]
  59. ULTRAM [Concomitant]
  60. LASIX [Concomitant]
  61. SPIRONOLACTONE [Concomitant]
  62. SPIRIVA [Concomitant]
  63. BAYCOL [Concomitant]
  64. CLARINEX /01202601/ [Concomitant]
  65. TROVAN /01326102/ [Concomitant]
  66. ALLEGRA [Concomitant]
  67. COUMADIN [Concomitant]

REACTIONS (76)
  - ILL-DEFINED DISORDER [None]
  - NAUSEA [None]
  - CARDIAC DISORDER [None]
  - RENAL FAILURE ACUTE [None]
  - CATHETERISATION CARDIAC [None]
  - STEROID THERAPY [None]
  - PERICARDIAL EFFUSION [None]
  - ELECTROCARDIOGRAM ABNORMAL [None]
  - OSTEOARTHRITIS [None]
  - PULMONARY FUNCTION TEST ABNORMAL [None]
  - RALES [None]
  - CHRONIC OBSTRUCTIVE PULMONARY DISEASE [None]
  - MYOCARDIAL INFARCTION [None]
  - PERIPHERAL VASCULAR DISORDER [None]
  - BACK PAIN [None]
  - POST LAMINECTOMY SYNDROME [None]
  - ACUTE SINUSITIS [None]
  - OEDEMA PERIPHERAL [None]
  - OSTEOPENIA [None]
  - INJURY [None]
  - HEART RATE INCREASED [None]
  - INTERVERTEBRAL DISC DISORDER [None]
  - DIARRHOEA [None]
  - CARDIAC FAILURE CONGESTIVE [None]
  - COUGH [None]
  - ANGINA PECTORIS [None]
  - BRONCHITIS [None]
  - MUSCULAR WEAKNESS [None]
  - ARTHRALGIA [None]
  - SPINAL OSTEOARTHRITIS [None]
  - MYOCARDIAL ISCHAEMIA [None]
  - CARDIOACTIVE DRUG LEVEL INCREASED [None]
  - LABORATORY TEST ABNORMAL [None]
  - LABYRINTHITIS [None]
  - BLOOD PRESSURE INCREASED [None]
  - CORONARY ARTERY DISEASE [None]
  - FLANK PAIN [None]
  - CARDIOMEGALY [None]
  - PALPITATIONS [None]
  - RHINITIS ALLERGIC [None]
  - RHONCHI [None]
  - SINUS TACHYCARDIA [None]
  - ECONOMIC PROBLEM [None]
  - DYSPNOEA [None]
  - ATRIAL FIBRILLATION [None]
  - TOXICITY TO VARIOUS AGENTS [None]
  - SCOLIOSIS [None]
  - ARTHRITIS [None]
  - HYPERTROPHY [None]
  - GROIN PAIN [None]
  - PRODUCTIVE COUGH [None]
  - CARDIOMYOPATHY [None]
  - MITRAL VALVE INCOMPETENCE [None]
  - CHEST PAIN [None]
  - COSTOCHONDRITIS [None]
  - DIZZINESS [None]
  - NUCLEAR MAGNETIC RESONANCE IMAGING ABNORMAL [None]
  - UPPER RESPIRATORY TRACT INFECTION [None]
  - ASTHENIA [None]
  - WHEEZING [None]
  - ARTERIAL STENOSIS [None]
  - PAIN IN EXTREMITY [None]
  - PYREXIA [None]
  - BREATH SOUNDS ABNORMAL [None]
  - CORONARY ARTERY BYPASS [None]
  - HEART RATE IRREGULAR [None]
  - HYPERAESTHESIA [None]
  - VENTRICULAR EXTRASYSTOLES [None]
  - SPINAL COLUMN STENOSIS [None]
  - EJECTION FRACTION DECREASED [None]
  - ACCIDENT [None]
  - LUMBAR SPINAL STENOSIS [None]
  - CARDIAC STRESS TEST ABNORMAL [None]
  - COMPUTERISED TOMOGRAM ABNORMAL [None]
  - HYPOREFLEXIA [None]
  - SEBACEOUS CYST EXCISION [None]
